FAERS Safety Report 5328420-1 (Version None)
Quarter: 2007Q2

REPORT INFORMATION
  Report Type: 
  Country: None (occurrence: None)
  Receive Date: 20070516
  Receipt Date: 20070516
  Transmission Date: 20071010
  Serious: Yes (Hospitalization)
  Sender: FDA-Public Use
  Company Number: None

PATIENT
  Age: 47 Year
  Sex: Female
  Weight: 71.2147 kg

DRUGS (2)
  1. TRAMADOL HCL [Suspect]
     Indication: PAIN
     Dosage: 100 MG Q6H PRN PO
     Route: 048
     Dates: start: 20070419, end: 20070420
  2. LYRICA [Suspect]
     Indication: PAIN
     Dosage: 50 MG TWICE DAILY PO
     Route: 048
     Dates: start: 20070419, end: 20070420

REACTIONS (17)
  - ABDOMINAL PAIN [None]
  - AGITATION [None]
  - CHEST PAIN [None]
  - DISTURBANCE IN ATTENTION [None]
  - DIZZINESS [None]
  - DRUG INTERACTION [None]
  - FEELING ABNORMAL [None]
  - HEART RATE INCREASED [None]
  - HYPERVENTILATION [None]
  - INSOMNIA [None]
  - MUSCLE SPASMS [None]
  - NAUSEA [None]
  - PARAESTHESIA [None]
  - PRURITUS GENERALISED [None]
  - RESTLESSNESS [None]
  - SEROTONIN SYNDROME [None]
  - VISION BLURRED [None]
